FAERS Safety Report 8330094-2 (Version None)
Quarter: 2012Q2

REPORT INFORMATION
  Report Type: 
  Country: None (occurrence: None)
  Receive Date: 20120502
  Receipt Date: 20120420
  Transmission Date: 20120825
  Serious: Yes (Other)
  Sender: FDA-Public Use
  Company Number: FR-FRI-1000030174

PATIENT
  Sex: Male

DRUGS (4)
  1. ESCITALOPRAM [Suspect]
     Indication: ANXIETY
     Route: 048
     Dates: start: 20120319, end: 20120319
  2. CITALOPRAM HYDROBROMIDE [Suspect]
     Dosage: 1/2 DROP DAILY
  3. ESCITALOPRAM [Suspect]
     Indication: PANIC ATTACK
  4. CITALOPRAM HYDROBROMIDE [Suspect]
     Dosage: 2 DROPS DAILY

REACTIONS (3)
  - ANXIETY [None]
  - SUICIDAL IDEATION [None]
  - HOMICIDAL IDEATION [None]
